FAERS Safety Report 24552735 (Version 1)
Quarter: 2024Q4

REPORT INFORMATION
  Report Type: Other
  Country: US (occurrence: US)
  Receive Date: 20241027
  Receipt Date: 20241027
  Transmission Date: 20250115
  Serious: Yes (Death, Other)
  Sender: DEXCEL
  Company Number: None

PATIENT
  Age: 82 Year

DRUGS (2)
  1. DONEPEZIL [Suspect]
     Active Substance: DONEPEZIL
  2. SOTALOL [Suspect]
     Active Substance: SOTALOL\SOTALOL HYDROCHLORIDE

REACTIONS (2)
  - Toxicity to various agents [Fatal]
  - Drug interaction [Fatal]
